FAERS Safety Report 22045460 (Version 2)
Quarter: 2023Q1

REPORT INFORMATION
  Report Type: Report from Study
  Country: US (occurrence: US)
  Receive Date: 20230228
  Receipt Date: 20230303
  Transmission Date: 20230417
  Serious: Yes (Hospitalization)
  Sender: FDA-Public Use
  Company Number: US-JNJFOC-20230252213

PATIENT
  Age: 15 Year
  Sex: Female
  Weight: 58.5 kg

DRUGS (2)
  1. INFLIXIMAB [Suspect]
     Active Substance: INFLIXIMAB
     Indication: Inflammatory bowel disease
     Route: 041
     Dates: start: 20140113, end: 20140707
  2. ENTYVIO [Concomitant]
     Active Substance: VEDOLIZUMAB
     Dosage: LAST ADMINISTRATION ON 16-JAN-2023
     Dates: start: 20141223

REACTIONS (1)
  - Crohn^s disease [Recovered/Resolved]

NARRATIVE: CASE EVENT DATE: 20230129
